FAERS Safety Report 4416912-9 (Version None)
Quarter: 2004Q3

REPORT INFORMATION
  Report Type: 
  Country: None (occurrence: None)
  Receive Date: 20040802
  Receipt Date: 20040723
  Transmission Date: 20050211
  Serious: Yes (Hospitalization)
  Sender: FDA-Public Use
  Company Number: 200418321BWH

PATIENT
  Age: 48 Year
  Sex: Male

DRUGS (2)
  1. LEVITRA [Suspect]
     Indication: ERECTILE DYSFUNCTION
     Dosage: 30, 10, 20 MG, TOTAL DAILY, ORAL
     Route: 048
  2. COCAINE [Concomitant]

REACTIONS (6)
  - BRADYCARDIA [None]
  - CHEST PAIN [None]
  - DRUG ABUSER [None]
  - ELECTROCARDIOGRAM T WAVE INVERSION [None]
  - PALPITATIONS [None]
  - SYNCOPE [None]
